FAERS Safety Report 4673381-1 (Version None)
Quarter: 2005Q2

REPORT INFORMATION
  Report Type: 
  Country: None (occurrence: None)
  Receive Date: 20050525
  Receipt Date: 20050411
  Transmission Date: 20051028
  Serious: Yes (Other)
  Sender: FDA-Public Use
  Company Number: JP-ROCHE-402115

PATIENT
  Age: 8 Month
  Sex: Male

DRUGS (8)
  1. OSELTAMIVIR [Suspect]
     Route: 048
     Dates: start: 20050329, end: 20050330
  2. BANAN [Concomitant]
     Route: 048
     Dates: start: 20050328, end: 20050330
  3. LAC B [Concomitant]
     Dosage: DOSE FORM: ORAL FORMULATION (NOT OTHERWISE SPECIFIED)
     Route: 048
     Dates: start: 20050328, end: 20050330
  4. ASVERIN [Concomitant]
     Route: 048
     Dates: start: 20050329, end: 20050330
  5. MUCODYNE [Concomitant]
     Route: 048
     Dates: start: 20050329, end: 20050330
  6. PERIACTIN [Concomitant]
     Route: 048
     Dates: start: 20050329, end: 20050330
  7. ANHIBA [Concomitant]
     Dosage: DOSE FORM REPORTED AS RECTAL SUPPOSITORY.
     Route: 054
     Dates: start: 20050329, end: 20050329
  8. TARIVID [Concomitant]
     Route: 031
     Dates: start: 20050329, end: 20050330

REACTIONS (6)
  - CYANOSIS [None]
  - DEHYDRATION [None]
  - HEPATOMEGALY [None]
  - HYPOTHERMIA [None]
  - LIVER PALPABLE SUBCOSTAL [None]
  - POOR PERIPHERAL CIRCULATION [None]
